FAERS Safety Report 24782710 (Version 5)
Quarter: 2025Q2

REPORT INFORMATION
  Report Type: Spontaneous
  Country: IN (occurrence: IN)
  Receive Date: 20241227
  Receipt Date: 20250610
  Transmission Date: 20250717
  Serious: Yes (Hospitalization, Other)
  Sender: PFIZER
  Company Number: IN-PFIZER INC-PV202400167542

PATIENT
  Age: 67 Year
  Sex: Female

DRUGS (8)
  1. LORLATINIB [Suspect]
     Active Substance: LORLATINIB
     Indication: Non-small cell lung cancer
     Dosage: 100 MG, 1X/DAY
     Route: 048
     Dates: start: 20241116
  2. THYROXINE [Concomitant]
     Active Substance: LEVOTHYROXINE
     Indication: Hypothyroidism
  3. AMLODIPINE BESYLATE [Concomitant]
     Active Substance: AMLODIPINE BESYLATE
     Dosage: 5, 1X/DAY
  4. TELMA [TELMISARTAN] [Concomitant]
     Dosage: 40, 1X/DAY
  5. ROSUVASTATIN CALCIUM [Concomitant]
     Active Substance: ROSUVASTATIN CALCIUM
     Dosage: 20, 1X/DAY
  6. DUPHALAC [Concomitant]
     Active Substance: LACTULOSE
     Dosage: 15 ML, 1X/DAY AT BEDTIME
  7. LEVOTHYROXINE [Concomitant]
     Active Substance: LEVOTHYROXINE
     Dosage: 75 UG, 1X/DAY
  8. FERROUS ASCORBATE\FOLIC ACID [Concomitant]
     Active Substance: FERROUS ASCORBATE\FOLIC ACID
     Dosage: 1 DF, 1X/DAY

REACTIONS (12)
  - Electrocardiogram QT interval abnormal [Unknown]
  - Haemoglobin decreased [Not Recovered/Not Resolved]
  - Platelet count decreased [Unknown]
  - Red blood cell count decreased [Unknown]
  - Haematocrit decreased [Unknown]
  - Rash [Unknown]
  - Eastern Cooperative Oncology Group performance status worsened [Unknown]
  - Blood pressure systolic increased [Unknown]
  - Heart rate increased [Unknown]
  - Red cell distribution width increased [Unknown]
  - Gamma-glutamyltransferase increased [Unknown]
  - Pain in extremity [Unknown]

NARRATIVE: CASE EVENT DATE: 20240101
